FAERS Safety Report 7310544-0 (Version None)
Quarter: 2011Q1

REPORT INFORMATION
  Report Type: 
  Country: None (occurrence: None)
  Receive Date: 20110224
  Receipt Date: 20101221
  Transmission Date: 20110831
  Serious: No
  Sender: FDA-Public Use
  Company Number: US-BRISTOL-MYERS SQUIBB COMPANY-15453780

PATIENT
  Age: 50 Year
  Sex: Female

DRUGS (10)
  1. DIFLUCAN [Suspect]
  2. KLONOPIN [Suspect]
  3. OPANA ER [Suspect]
  4. LISINOPRIL [Suspect]
  5. METFORMIN HCL [Suspect]
  6. ZETIA [Suspect]
  7. LANTUS [Suspect]
  8. LORTAB [Suspect]
  9. CYMBALTA [Suspect]
  10. PLAVIX [Suspect]

REACTIONS (1)
  - WEIGHT INCREASED [None]
